FAERS Safety Report 5015560-X (Version None)
Quarter: 2006Q2

REPORT INFORMATION
  Report Type: 
  Country: None (occurrence: None)
  Receive Date: 20060601
  Receipt Date: 20060428
  Transmission Date: 20061013
  Serious: No
  Sender: FDA-Public Use
  Company Number: JP-AVENTIS-200611395JP

PATIENT
  Age: 86 Year
  Sex: Male

DRUGS (5)
  1. ALLEGRA [Suspect]
     Indication: DERMATITIS
     Route: 048
     Dates: start: 20060421, end: 20060427
  2. BUFFERIN [Concomitant]
     Indication: MYOCARDIAL INFARCTION
  3. ISOSORBIDE MONONITRATE [Concomitant]
     Indication: MYOCARDIAL INFARCTION
  4. PLETAL [Concomitant]
     Indication: MYOCARDIAL INFARCTION
  5. DIACORT [Concomitant]
     Route: 058
     Dates: start: 20060421

REACTIONS (2)
  - DRUG ERUPTION [None]
  - RASH PAPULAR [None]
